FAERS Safety Report 8158639-6 (Version None)
Quarter: 2012Q1

REPORT INFORMATION
  Report Type: 
  Country: None (occurrence: None)
  Receive Date: 20120217
  Receipt Date: 20120207
  Transmission Date: 20120608
  Serious: Yes (Other)
  Sender: FDA-Public Use
  Company Number: GER/GER/12/0022946

PATIENT
  Sex: Female
  Weight: 3.37 kg

DRUGS (2)
  1. SERTRALINE HYDROCHLORIDE [Suspect]
     Indication: PRODUCT USED FOR UNKNOWN INDICATION
     Dosage: 50-100MG, TRANSPLACENTAL
     Route: 064
     Dates: start: 20101120, end: 20110812
  2. FOLSAEURE RATIOPHARM (FOLIC ACID) [Concomitant]

REACTIONS (3)
  - MYOCLONUS [None]
  - MATERNAL DRUGS AFFECTING FOETUS [None]
  - CAESAREAN SECTION [None]
